FAERS Safety Report 16527442 (Version 1)
Quarter: 2019Q3

REPORT INFORMATION
  Report Type: Spontaneous
  Country: IT (occurrence: IT)
  Receive Date: 20190704
  Receipt Date: 20190704
  Transmission Date: 20191004
  Serious: Yes (Other)
  Sender: FDA-Public Use
  Company Number: IT-SA-2019SA176219

PATIENT
  Age: 73 Year
  Sex: Female

DRUGS (6)
  1. COAPROVEL [Suspect]
     Active Substance: HYDROCHLOROTHIAZIDE\IRBESARTAN
     Indication: HYPERTENSION
     Dosage: 1 DF, QD
     Route: 048
     Dates: start: 20190101, end: 20190322
  2. LORAZEPAM. [Concomitant]
     Active Substance: LORAZEPAM
  3. APROVEL [Suspect]
     Active Substance: IRBESARTAN
     Indication: HYPERTENSION
     Dosage: 1 DF, QD
     Route: 048
     Dates: start: 20190101, end: 20190322
  4. DEBRIDAT [TRIMEBUTINE] [Concomitant]
     Active Substance: TRIMEBUTINE
  5. MOVICOL [MACROGOL;POTASSIUM CHLORIDE;SODIUM BICARBONATE;SODIUM CHLORID [Concomitant]
  6. ESCITALOPRAM OXALATE. [Suspect]
     Active Substance: ESCITALOPRAM OXALATE
     Indication: PRODUCT USED FOR UNKNOWN INDICATION
     Dosage: 1 DF, QD
     Dates: start: 20190101, end: 20190322

REACTIONS (1)
  - Blood sodium decreased [Recovering/Resolving]

NARRATIVE: CASE EVENT DATE: 20190322
